FAERS Safety Report 16259862 (Version 1)
Quarter: 2019Q2

REPORT INFORMATION
  Report Type: Spontaneous
  Country: GB (occurrence: GB)
  Receive Date: 20190501
  Receipt Date: 20190501
  Transmission Date: 20190711
  Serious: Yes (Life-Threatening, Other)
  Sender: FDA-Public Use
  Company Number: GB-TEVA-2019-GB-1043351

PATIENT
  Age: 62 Year
  Sex: Female
  Weight: 123 kg

DRUGS (9)
  1. SIMVASTATIN. [Concomitant]
     Active Substance: SIMVASTATIN
     Dosage: 40 MILLIGRAM DAILY; AT NIGHT.
     Dates: start: 20190225, end: 20190313
  2. ACETYLSALICYLIC ACID [Concomitant]
     Active Substance: ASPIRIN
     Dosage: 150 MILLIGRAM DAILY;
     Dates: start: 20190225, end: 20190313
  3. AMITRIPTYLINE [Concomitant]
     Active Substance: AMITRIPTYLINE
     Dosage: AT NIGHT.
     Dates: start: 20190225, end: 20190313
  4. TRAMADOL HYDROCHLORIDE. [Concomitant]
     Active Substance: TRAMADOL HYDROCHLORIDE
     Dosage: 2 DOSAGE FORMS DAILY;
     Dates: start: 20190128
  5. BISOPROLOL [Concomitant]
     Active Substance: BISOPROLOL
     Dosage: 16 MILLIGRAM DAILY;
     Dates: start: 20190225, end: 20190313
  6. AMOXICILLIN. [Suspect]
     Active Substance: AMOXICILLIN
     Indication: COUGH
     Dosage: 3 DOSAGE FORMS DAILY;
     Route: 048
     Dates: start: 20190124, end: 20190313
  7. MONOMIL XL [Concomitant]
     Active Substance: ISOSORBIDE MONONITRATE
     Dates: start: 20190225, end: 20190313
  8. NICORANDIL [Concomitant]
     Active Substance: NICORANDIL
     Dates: start: 20190225, end: 20190313
  9. OMEPRAZOLE. [Concomitant]
     Active Substance: OMEPRAZOLE
     Dosage: 10 MILLIGRAM DAILY;
     Dates: start: 20190128

REACTIONS (1)
  - Chest discomfort [Recovered/Resolved]

NARRATIVE: CASE EVENT DATE: 20190313
